FAERS Safety Report 24379138 (Version 1)
Quarter: 2024Q3

REPORT INFORMATION
  Report Type: Spontaneous
  Country: US (occurrence: None)
  Receive Date: 20240929
  Receipt Date: 20240929
  Transmission Date: 20241017
  Serious: Yes (unspecified)
  Sender: Public
  Company Number: None

PATIENT
  Age: 20 Year
  Sex: Female

DRUGS (1)
  1. INFLECTRA [Suspect]
     Active Substance: INFLIXIMAB-DYYB
     Indication: Crohn^s disease
     Dosage: OTHER FREQUENCY : AT WEEK 2;?

REACTIONS (7)
  - Hypersensitivity [None]
  - Flushing [None]
  - Angioedema [None]
  - Abdominal pain [None]
  - Diarrhoea [None]
  - Anxiety [None]
  - Feeling jittery [None]

NARRATIVE: CASE EVENT DATE: 20240830
